FAERS Safety Report 21898479 (Version 1)
Quarter: 2023Q1

REPORT INFORMATION
  Report Type: Spontaneous
  Country: US (occurrence: US)
  Receive Date: 20230123
  Receipt Date: 20230123
  Transmission Date: 20230417
  Serious: Yes (Other)
  Sender: FDA-Public Use
  Company Number: US-AMGEN-USASP2023009493

PATIENT

DRUGS (1)
  1. ENBREL [Suspect]
     Active Substance: ETANERCEPT
     Indication: Product used for unknown indication
     Dosage: 25 MILLIGRAM, QD
     Route: 065

REACTIONS (3)
  - Polymyalgia rheumatica [Recovering/Resolving]
  - Giant cell arteritis [Recovering/Resolving]
  - Off label use [Unknown]
